FAERS Safety Report 4896236-6 (Version None)
Quarter: 2006Q1

REPORT INFORMATION
  Report Type: 
  Country: None (occurrence: None)
  Receive Date: 20060126
  Receipt Date: 20060112
  Transmission Date: 20060701
  Serious: Yes (Other)
  Sender: FDA-Public Use
  Company Number: HQWYE601431MAR05

PATIENT
  Age: 57 Year
  Sex: Female
  Weight: 68.1 kg

DRUGS (3)
  1. PREMPRO [Suspect]
     Indication: MENOPAUSAL SYMPTOMS
     Dosage: ORAL
     Route: 048
     Dates: start: 19960101, end: 20030101
  2. PREMARIN [Suspect]
     Indication: OESTROGEN REPLACEMENT THERAPY
  3. PROVERA [Suspect]
     Indication: HORMONE REPLACEMENT THERAPY

REACTIONS (5)
  - BREAST CANCER [None]
  - LYMPHOEDEMA [None]
  - OESTROGEN RECEPTOR ASSAY POSITIVE [None]
  - PROGESTERONE RECEPTOR ASSAY POSITIVE [None]
  - THERAPY NON-RESPONDER [None]
